FAERS Safety Report 14894601 (Version 2)
Quarter: 2018Q2

REPORT INFORMATION
  Report Type: Report from Study
  Country: US (occurrence: US)
  Receive Date: 20180515
  Receipt Date: 20180529
  Transmission Date: 20180711
  Serious: Yes (Hospitalization, Other)
  Sender: FDA-Public Use
  Company Number: US-TAKEDA-2018TUS012528

PATIENT
  Age: 46 Year
  Sex: Male

DRUGS (2)
  1. VEDOLIZUMAB [Suspect]
     Active Substance: VEDOLIZUMAB
     Indication: PRODUCT USED FOR UNKNOWN INDICATION
     Dosage: 300 MG, UNK
     Route: 042
     Dates: start: 20180117, end: 20180517
  2. PREDNISONE. [Concomitant]
     Active Substance: PREDNISONE
     Dosage: 5 MG, BID
     Dates: start: 20180418

REACTIONS (3)
  - Arrhythmia [Unknown]
  - Frequent bowel movements [Not Recovered/Not Resolved]
  - Ileostomy [Not Recovered/Not Resolved]

NARRATIVE: CASE EVENT DATE: 20180418
